FAERS Safety Report 22385902 (Version 1)
Quarter: 2023Q2

REPORT INFORMATION
  Report Type: Spontaneous
  Country: US (occurrence: US)
  Receive Date: 20230530
  Receipt Date: 20230530
  Transmission Date: 20230721
  Serious: Yes (Death, Life-Threatening, Hospitalization, Other)
  Sender: FDA-Public Use
  Company Number: US-GSK-US2023GSK075061

PATIENT

DRUGS (4)
  1. ABACAVIR SULFATE\LAMIVUDINE [Suspect]
     Active Substance: ABACAVIR SULFATE\LAMIVUDINE
     Indication: Acquired immunodeficiency syndrome
     Dosage: UNK (STANDARD DOSE)
  2. COBICISTAT\DARUNAVIR ETHANOLATE [Suspect]
     Active Substance: COBICISTAT\DARUNAVIR ETHANOLATE
     Indication: Acquired immunodeficiency syndrome
     Dosage: UNK (B.I.D)
  3. TECOVIRIMAT [Concomitant]
     Active Substance: TECOVIRIMAT
     Indication: Monkeypox
     Dosage: UNK
     Route: 048
  4. BRINCIDOFOVIR [Concomitant]
     Active Substance: BRINCIDOFOVIR
     Indication: Monkeypox
     Dosage: UNK

REACTIONS (10)
  - Immune reconstitution inflammatory syndrome [Fatal]
  - Illness [Fatal]
  - General physical health deterioration [Unknown]
  - Condition aggravated [Unknown]
  - Encephalopathy [Unknown]
  - Acidosis [Unknown]
  - Acute kidney injury [Unknown]
  - Tenosynovitis [Unknown]
  - Seizure [Unknown]
  - Skin lesion [Unknown]
